FAERS Safety Report 5856291-3 (Version None)
Quarter: 2008Q3

REPORT INFORMATION
  Report Type: 
  Country: None (occurrence: None)
  Receive Date: 20080825
  Receipt Date: 20080821
  Transmission Date: 20090109
  Serious: Yes (Hospitalization)
  Sender: FDA-Public Use
  Company Number: B0534132A

PATIENT
  Age: 82 Year
  Sex: Male

DRUGS (12)
  1. ARTIST [Suspect]
     Dosage: 10MG TWICE PER DAY
     Route: 048
     Dates: start: 20080723, end: 20080723
  2. BEPRICOR [Suspect]
     Dosage: 50MG TWICE PER DAY
     Route: 048
     Dates: start: 20080723, end: 20080723
  3. DIGOSIN [Suspect]
     Route: 048
     Dates: start: 20080723, end: 20080723
  4. OLMESARTAN MEDOXOMIL [Concomitant]
     Route: 065
     Dates: start: 20080723
  5. SELBEX [Concomitant]
     Route: 065
     Dates: start: 20080723
  6. LASIX [Concomitant]
     Route: 065
     Dates: start: 20080723
  7. SENNA [Concomitant]
     Route: 065
     Dates: start: 20080723
  8. WARFARIN SODIUM [Concomitant]
     Route: 065
  9. ZYLORIC [Concomitant]
     Route: 065
     Dates: start: 20080723
  10. NICORANDIL [Concomitant]
     Route: 065
     Dates: start: 20080723
  11. BUFFERIN [Concomitant]
     Route: 065
     Dates: start: 20080723
  12. CONIEL [Concomitant]
     Route: 065
     Dates: start: 20080723

REACTIONS (8)
  - BLOOD GLUCOSE INCREASED [None]
  - BLOOD LACTATE DEHYDROGENASE DECREASED [None]
  - BLOOD UREA INCREASED [None]
  - C-REACTIVE PROTEIN INCREASED [None]
  - PLATELET COUNT DECREASED [None]
  - PROTHROMBIN TIME PROLONGED [None]
  - SINUS TACHYCARDIA [None]
  - VENTRICULAR TACHYCARDIA [None]
